FAERS Safety Report 19848683 (Version 2)
Quarter: 2021Q3

REPORT INFORMATION
  Report Type: Report from Study
  Country: None (occurrence: US)
  Receive Date: 20210918
  Receipt Date: 20210923
  Transmission Date: 20211014
  Serious: Yes (Other)
  Sender: FDA-Public Use
  Company Number: US-ABBVIE-21K-163-4080068-00

PATIENT
  Sex: Male
  Weight: 75.36 kg

DRUGS (1)
  1. HUMIRA [Suspect]
     Active Substance: ADALIMUMAB
     Indication: COLITIS ULCERATIVE
     Route: 058
     Dates: start: 20210811

REACTIONS (8)
  - Abdominal pain [Unknown]
  - Abdominal distension [Unknown]
  - Haemorrhoids [Unknown]
  - Mucous stools [Unknown]
  - Defaecation urgency [Not Recovered/Not Resolved]
  - Decreased appetite [Unknown]
  - Proctalgia [Not Recovered/Not Resolved]
  - Diarrhoea haemorrhagic [Unknown]

NARRATIVE: CASE EVENT DATE: 2021
